FAERS Safety Report 5480512-2 (Version None)
Quarter: 2007Q4

REPORT INFORMATION
  Report Type: 
  Country: None (occurrence: None)
  Receive Date: 20071009
  Receipt Date: 20071004
  Transmission Date: 20080405
  Serious: Yes (Disabling)
  Sender: FDA-Public Use
  Company Number: FR-ASTRAZENECA-2007CG01408

PATIENT
  Age: 54 Year
  Sex: Female

DRUGS (5)
  1. INEXIUM [Suspect]
     Indication: PROPHYLAXIS AGAINST GASTROINTESTINAL ULCER
     Route: 048
     Dates: start: 20070701
  2. NORFLOXACIN [Suspect]
     Indication: URINARY TRACT INFECTION
     Route: 048
     Dates: start: 20070701, end: 20070701
  3. VOLTAREN [Concomitant]
     Indication: MYALGIA
     Dates: start: 20070701
  4. DI-ANTALVIC [Concomitant]
     Indication: MYALGIA
     Dates: start: 20070701
  5. HYZAAR [Concomitant]
     Indication: HYPERTENSION

REACTIONS (1)
  - TENDON RUPTURE [None]
